FAERS Safety Report 7472917-5 (Version None)
Quarter: 2011Q2

REPORT INFORMATION
  Report Type: 
  Country: None (occurrence: None)
  Receive Date: 20110511
  Receipt Date: 20110405
  Transmission Date: 20111010
  Serious: Yes (Other)
  Sender: FDA-Public Use
  Company Number: US-BAYER-201024171NA

PATIENT
  Age: 34 Year
  Sex: Female
  Weight: 70 kg

DRUGS (7)
  1. YAZ [Suspect]
     Dosage: UNK
     Dates: start: 20071001, end: 20090901
  2. VITAMIN D [Concomitant]
  3. ACETAMINOPHEN [Concomitant]
  4. ALLEGRA-D [FEXOFENADINE HYDROCHLORIDE,PSEUDOEPHEDRINE HYDROCHLORIDE] [Concomitant]
     Dosage: UNK
     Dates: start: 20070101, end: 20100101
  5. YASMIN [Suspect]
     Indication: PRODUCT USED FOR UNKNOWN INDICATION
     Route: 048
  6. YAZ [Suspect]
     Indication: PREMENSTRUAL SYNDROME
     Dosage: UNK
     Dates: start: 20071001, end: 20090401
  7. CLARITIN-D [Concomitant]

REACTIONS (9)
  - DIARRHOEA [None]
  - ANXIETY [None]
  - ABDOMINAL DISTENSION [None]
  - FLATULENCE [None]
  - DEPRESSION [None]
  - CHOLELITHIASIS [None]
  - DYSPEPSIA [None]
  - CONSTIPATION [None]
  - CHOLECYSTECTOMY [None]
